FAERS Safety Report 8257077-5 (Version None)
Quarter: 2012Q2

REPORT INFORMATION
  Report Type: 
  Country: None (occurrence: None)
  Receive Date: 20120403
  Receipt Date: 20120330
  Transmission Date: 20120825
  Serious: Yes (Other)
  Sender: FDA-Public Use
  Company Number: GB-GLAXOSMITHKLINE-B0792997A

PATIENT
  Sex: Male

DRUGS (6)
  1. ORAMORPH SR [Concomitant]
  2. RAMIPRIL [Concomitant]
  3. MORPHINE [Concomitant]
  4. FELODIPINE [Concomitant]
  5. INDAPAMIDE [Concomitant]
  6. VOTRIENT [Suspect]
     Indication: RENAL CELL CARCINOMA
     Dosage: 800MG PER DAY
     Route: 048

REACTIONS (2)
  - BLOOD CALCIUM ABNORMAL [None]
  - BLOOD SODIUM ABNORMAL [None]
